FAERS Safety Report 17186256 (Version 2)
Quarter: 2020Q1

REPORT INFORMATION
  Report Type: Report from Study
  Country: IT (occurrence: IT)
  Receive Date: 20191220
  Receipt Date: 20200102
  Transmission Date: 20200409
  Serious: Yes (Hospitalization)
  Sender: FDA-Public Use
  Company Number: IT-MYLANLABS-2019M1126922

PATIENT
  Age: 61 Year
  Sex: Male

DRUGS (1)
  1. LEVOFLOXACIN. [Suspect]
     Active Substance: LEVOFLOXACIN
     Indication: ABDOMINAL PAIN
     Dosage: 500 MILLIGRAM, QD
     Route: 048
     Dates: start: 20180901, end: 20190901

REACTIONS (4)
  - Hepatitis acute [Recovering/Resolving]
  - Hypertransaminasaemia [Recovering/Resolving]
  - Hyperbilirubinaemia [Recovering/Resolving]
  - Gamma-glutamyltransferase increased [Recovering/Resolving]

NARRATIVE: CASE EVENT DATE: 20190901
